FAERS Safety Report 15372137 (Version 4)
Quarter: 2022Q3

REPORT INFORMATION
  Report Type: Spontaneous
  Country: FR (occurrence: FR)
  Receive Date: 20180911
  Receipt Date: 20220826
  Transmission Date: 20221027
  Serious: Yes (Death)
  Sender: FDA-Public Use
  Company Number: None

PATIENT
  Age: 52 Year
  Sex: Male
  Weight: 96 kg

DRUGS (13)
  1. EMEND [Suspect]
     Active Substance: APREPITANT
     Indication: Nausea
     Dosage: UNK
     Route: 048
     Dates: start: 20180806, end: 20180816
  2. CORDARONE [Suspect]
     Active Substance: AMIODARONE HYDROCHLORIDE
     Indication: Atrial fibrillation
     Dosage: UNK
     Route: 042
     Dates: start: 20180816, end: 20180822
  3. LINEZOLID [Suspect]
     Active Substance: LINEZOLID
     Indication: Infection
     Dosage: UNK
     Route: 041
     Dates: start: 20180816, end: 20180823
  4. CYCLOSPORINE [Suspect]
     Active Substance: CYCLOSPORINE
     Indication: Bone marrow transplant
     Dosage: UNK
     Route: 041
     Dates: start: 20180811, end: 20180824
  5. IOBITRIDOL [Suspect]
     Active Substance: IOBITRIDOL
     Indication: Computerised tomogram
     Dosage: UNK
     Route: 042
     Dates: start: 20180816, end: 20180816
  6. MYCAMINE [Suspect]
     Active Substance: MICAFUNGIN SODIUM
     Indication: Infection
     Dosage: UNK
     Route: 041
     Dates: start: 20180817, end: 20180823
  7. ACYCLOVIR SODIUM [Suspect]
     Active Substance: ACYCLOVIR SODIUM
     Indication: Infection
     Dosage: UNK
     Route: 042
     Dates: start: 20180818, end: 20180824
  8. PANTOPRAZOLE [Suspect]
     Active Substance: PANTOPRAZOLE
     Indication: Nausea
     Dosage: UNK
     Route: 048
     Dates: start: 20180806, end: 20180816
  9. CILASTATIN SODIUM\IMIPENEM [Suspect]
     Active Substance: CILASTATIN SODIUM\IMIPENEM
     Indication: Infection
     Dosage: UNK
     Route: 041
     Dates: start: 20180820, end: 20180824
  10. ONDANSETRON [Suspect]
     Active Substance: ONDANSETRON
     Indication: Nausea
     Dosage: UNK, INJECTION
     Route: 042
     Dates: start: 20180807, end: 20180816
  11. PIPERACILLIN SODIUM\TAZOBACTAM SODIUM [Suspect]
     Active Substance: PIPERACILLIN SODIUM\TAZOBACTAM SODIUM
     Indication: Infection
     Dosage: UNK
     Route: 041
     Dates: start: 20180815, end: 20180820
  12. CYCLOPHOSPHAMIDE [Suspect]
     Active Substance: CYCLOPHOSPHAMIDE
     Indication: Bone marrow transplant
     Dosage: UNK
     Route: 041
     Dates: start: 20180810, end: 20180811
  13. METRONIDAZOLE [Interacting]
     Active Substance: METRONIDAZOLE
     Indication: Infection
     Dosage: UNK
     Route: 041
     Dates: start: 20180816, end: 20180823

REACTIONS (1)
  - Toxic epidermal necrolysis [Fatal]

NARRATIVE: CASE EVENT DATE: 20180821
